FAERS Safety Report 8875647 (Version 3)
Quarter: 2012Q4

REPORT INFORMATION
  Report Type: 
  Country: FR (occurrence: FR)
  Receive Date: 20121023
  Receipt Date: 20121127
  Transmission Date: 20130627
  Serious: Yes (Disabling, Other)
  Sender: FDA-Public Use
  Company Number: PHHY2012FR094130

PATIENT
  Age: 41 None
  Sex: Female
  Weight: 65 kg

DRUGS (4)
  1. TASIGNA [Suspect]
     Indication: CHRONIC MYELOID LEUKAEMIA
     Dosage: 400 mg, BID
     Route: 048
     Dates: start: 20120130
  2. LAMICTAL [Concomitant]
     Indication: EPILEPSY
  3. CARBAMAZEPINE [Concomitant]
  4. URBANYL [Suspect]
     Indication: EPILEPSY

REACTIONS (9)
  - Scotoma [Not Recovered/Not Resolved]
  - Vision blurred [Recovering/Resolving]
  - Eye pain [Not Recovered/Not Resolved]
  - Ventricular extrasystoles [Unknown]
  - Asthenia [Unknown]
  - Muscle spasms [Unknown]
  - Dizziness [Unknown]
  - Arthralgia [Unknown]
  - Diplopia [Unknown]
